FAERS Safety Report 6983802-7 (Version None)
Quarter: 2010Q3

REPORT INFORMATION
  Report Type: 
  Country: None (occurrence: None)
  Receive Date: 20100914
  Receipt Date: 20090109
  Transmission Date: 20110219
  Serious: Yes (Other)
  Sender: FDA-Public Use
  Company Number: US-WYE-H07609209

PATIENT
  Age: 6 Year
  Sex: Male
  Weight: 20 kg

DRUGS (2)
  1. TYGACIL [Suspect]
     Indication: LUPUS NEPHRITIS
     Dosage: 1.5 MG/KG FOLLOWED BY 1MG/KG EVERY 12 HOURS
     Route: 042
     Dates: start: 20090105, end: 20090106
  2. PREDNISONE [Concomitant]

REACTIONS (1)
  - PANCREATITIS [None]
